FAERS Safety Report 14106420 (Version 1)
Quarter: 2017Q4

REPORT INFORMATION
  Report Type: Spontaneous
  Country: GB (occurrence: GB)
  Receive Date: 20171018
  Receipt Date: 20171018
  Transmission Date: 20180321
  Serious: Yes (Other)
  Sender: FDA-Public Use
  Company Number: GB-TEVA-816182ACC

PATIENT
  Age: 52 Year
  Sex: Female
  Weight: 70 kg

DRUGS (2)
  1. VENLAFAXINE [Suspect]
     Active Substance: VENLAFAXINE HYDROCHLORIDE
  2. EVOREL SEQUI [Concomitant]
     Active Substance: ESTRADIOL\NORETHINDRONE ACETATE

REACTIONS (7)
  - Lack of satiety [Unknown]
  - Orgasm abnormal [Unknown]
  - Female sexual dysfunction [Unknown]
  - Dizziness [Unknown]
  - Orgasmic sensation decreased [Unknown]
  - Anorgasmia [Unknown]
  - Increased appetite [Unknown]
